FAERS Safety Report 5763834-7 (Version None)
Quarter: 2008Q2

REPORT INFORMATION
  Report Type: 
  Country: None (occurrence: None)
  Receive Date: 20080606
  Receipt Date: 20080606
  Transmission Date: 20081010
  Serious: Yes (Other)
  Sender: FDA-Public Use
  Company Number: None

PATIENT
  Sex: Male
  Weight: 61 kg

DRUGS (3)
  1. VANCOMYCIN [Suspect]
  2. ZOSYN [Suspect]
  3. CEFTAZIDIME [Suspect]

REACTIONS (3)
  - BLOOD CREATININE INCREASED [None]
  - DRUG ERUPTION [None]
  - RASH ERYTHEMATOUS [None]
